FAERS Safety Report 24358806 (Version 1)
Quarter: 2024Q3

REPORT INFORMATION
  Report Type: Spontaneous
  Country: FR (occurrence: FR)
  Receive Date: 20240924
  Receipt Date: 20240924
  Transmission Date: 20241017
  Serious: Yes (Hospitalization)
  Sender: TEVA
  Company Number: None

PATIENT
  Age: 33 Year
  Sex: Female

DRUGS (3)
  1. MIRTAZAPINE [Suspect]
     Active Substance: MIRTAZAPINE
     Indication: Toxicity to various agents
     Dosage: 10 TABS OF 45 MG
     Route: 048
     Dates: start: 20240526, end: 20240527
  2. DIAZEPAM [Suspect]
     Active Substance: DIAZEPAM
     Indication: Toxicity to various agents
     Dosage: 5 TABS OF 10 MG
     Route: 048
     Dates: start: 20240526, end: 20240527
  3. CYAMEMAZINE [Suspect]
     Active Substance: CYAMEMAZINE
     Indication: Toxicity to various agents
     Dosage: 13 TABS OF 25 MG
     Route: 048
     Dates: start: 20240526, end: 20240527

REACTIONS (2)
  - Coma [Recovered/Resolved]
  - Poisoning deliberate [Recovered/Resolved]

NARRATIVE: CASE EVENT DATE: 20240526
